FAERS Safety Report 11325341 (Version 4)
Quarter: 2015Q4

REPORT INFORMATION
  Report Type: Report from Study
  Country: NL (occurrence: NL)
  Receive Date: 20150730
  Receipt Date: 20151019
  Transmission Date: 20160304
  Serious: Yes (Other)
  Sender: FDA-Public Use
  Company Number: NL-ABBVIE-15P-114-1394759-00

PATIENT
  Age: 72 Year
  Sex: Female
  Weight: 46.4 kg

DRUGS (3)
  1. ORAMORPH [Concomitant]
     Active Substance: MORPHINE SULFATE
     Indication: PRODUCT USED FOR UNKNOWN INDICATION
  2. CLOZAPINE. [Concomitant]
     Active Substance: CLOZAPINE
     Indication: PRODUCT USED FOR UNKNOWN INDICATION
  3. DUODOPA [Suspect]
     Active Substance: CARBIDOPA\LEVODOPA
     Indication: PARKINSON^S DISEASE
     Dosage: 20/5MG/ML, SEE NARRATIVE, CONTINUOUS
     Route: 050
     Dates: start: 20130121

REACTIONS (19)
  - Oral administration complication [Unknown]
  - Stoma site erythema [Not Recovered/Not Resolved]
  - Agitation [Recovering/Resolving]
  - Abnormal behaviour [Not Recovered/Not Resolved]
  - Dyskinesia [Recovering/Resolving]
  - Underdose [Not Recovered/Not Resolved]
  - Suicidal ideation [Not Recovered/Not Resolved]
  - Stoma site discharge [Not Recovered/Not Resolved]
  - Dyskinesia [Not Recovered/Not Resolved]
  - Restlessness [Not Recovered/Not Resolved]
  - On and off phenomenon [Not Recovered/Not Resolved]
  - Weight decreased [Unknown]
  - Stoma site discharge [Not Recovered/Not Resolved]
  - Catheter site infection [Recovering/Resolving]
  - Hallucination [Recovering/Resolving]
  - Stoma site discharge [Recovering/Resolving]
  - Fibroma [Recovering/Resolving]
  - Dyskinesia [Recovering/Resolving]
  - Depressed mood [Not Recovered/Not Resolved]

NARRATIVE: CASE EVENT DATE: 201505
